FAERS Safety Report 6125729-9 (Version None)
Quarter: 2009Q1

REPORT INFORMATION
  Report Type: 
  Country: None (occurrence: None)
  Receive Date: 20090320
  Receipt Date: 20090312
  Transmission Date: 20090719
  Serious: Yes (Other)
  Sender: FDA-Public Use
  Company Number: CA-ASTRAZENECA-2009UW06636

PATIENT
  Sex: Male

DRUGS (1)
  1. CRESTOR [Suspect]
     Indication: BLOOD CHOLESTEROL
     Route: 048
     Dates: start: 20070101, end: 20090308

REACTIONS (4)
  - BACK PAIN [None]
  - DYSPNOEA [None]
  - LUNG DISORDER [None]
  - MUSCULOSKELETAL PAIN [None]
